FAERS Safety Report 19164482 (Version 3)
Quarter: 2021Q2

REPORT INFORMATION
  Report Type: Report from Study
  Country: US (occurrence: US)
  Receive Date: 20210421
  Receipt Date: 20210423
  Transmission Date: 20210717
  Serious: Yes (Other)
  Sender: FDA-Public Use
  Company Number: NVSC2021US088030

PATIENT
  Sex: Male

DRUGS (1)
  1. ENTRESTO [Suspect]
     Active Substance: SACUBITRIL\VALSARTAN
     Indication: PRODUCT USED FOR UNKNOWN INDICATION
     Dosage: UNK UNK, BID
     Route: 048
     Dates: start: 202011

REACTIONS (5)
  - Psychomotor hyperactivity [Recovering/Resolving]
  - Fatigue [Recovering/Resolving]
  - Ejection fraction decreased [Unknown]
  - Dyspnoea [Recovering/Resolving]
  - Arthralgia [Recovered/Resolved]
